FAERS Safety Report 11068347 (Version 9)
Quarter: 2025Q3

REPORT INFORMATION
  Report Type: Spontaneous
  Country: US (occurrence: US)
  Receive Date: 20150427
  Receipt Date: 20250820
  Transmission Date: 20251021
  Serious: Yes (Death)
  Sender: PFIZER
  Company Number: US-PFIZER INC-2015144021

PATIENT
  Age: 38 Year
  Sex: Male
  Weight: 91.2 kg

DRUGS (11)
  1. PROPRANOLOL HYDROCHLORIDE [Suspect]
     Active Substance: PROPRANOLOL HYDROCHLORIDE
  2. VERAPAMIL HCL [Suspect]
     Active Substance: VERAPAMIL HYDROCHLORIDE
     Dosage: ONE 80 MG DOSE THREE TIMES PER DAY
  3. VERAPAMIL HCL [Suspect]
     Active Substance: VERAPAMIL HYDROCHLORIDE
  4. NAPROXEN SODIUM [Suspect]
     Active Substance: NAPROXEN SODIUM
  5. PREGABALIN [Suspect]
     Active Substance: PREGABALIN
  6. DICLOFENAC [Suspect]
     Active Substance: DICLOFENAC
  7. DIPHENHYDRAMINE [Suspect]
     Active Substance: DIPHENHYDRAMINE
  8. LORAZEPAM [Suspect]
     Active Substance: LORAZEPAM
  9. DULOXETINE [Suspect]
     Active Substance: DULOXETINE
  10. OMEPRAZOLE [Suspect]
     Active Substance: OMEPRAZOLE
  11. TADALAFIL [Suspect]
     Active Substance: TADALAFIL

REACTIONS (2)
  - Intentional overdose [Fatal]
  - Toxicity to various agents [Fatal]
